FAERS Safety Report 22074552 (Version 1)
Quarter: 2023Q1

REPORT INFORMATION
  Report Type: Spontaneous
  Country: CA (occurrence: CA)
  Receive Date: 20230308
  Receipt Date: 20230308
  Transmission Date: 20230417
  Serious: Yes (Hospitalization, Other)
  Sender: FDA-Public Use
  Company Number: CA-AstraZeneca-2023A050989

PATIENT
  Age: 72 Year
  Sex: Male

DRUGS (61)
  1. CICLESONIDE [Suspect]
     Active Substance: CICLESONIDE
     Indication: Asthma
     Route: 065
  2. OMNARIS [Suspect]
     Active Substance: CICLESONIDE
     Indication: Seasonal allergy
     Route: 045
  3. OMNARIS [Suspect]
     Active Substance: CICLESONIDE
     Indication: Rhinitis perennial
  4. BUDESONIDE [Suspect]
     Active Substance: BUDESONIDE
     Indication: Product used for unknown indication
     Route: 048
  5. BUDESONIDE [Suspect]
     Active Substance: BUDESONIDE
     Route: 048
  6. ADVAIR HFA [Suspect]
     Active Substance: FLUTICASONE PROPIONATE\SALMETEROL XINAFOATE
     Indication: Product used for unknown indication
  7. AMOXICILLIN\CLAVULANATE POTASSIUM [Suspect]
     Active Substance: AMOXICILLIN\CLAVULANATE POTASSIUM
     Indication: Product used for unknown indication
  8. AMOXICILLIN\CLAVULANATE POTASSIUM [Suspect]
     Active Substance: AMOXICILLIN\CLAVULANATE POTASSIUM
     Indication: Product used for unknown indication
  9. APIXABAN [Suspect]
     Active Substance: APIXABAN
     Indication: Product used for unknown indication
  10. CALCIUM CARBONATE\CHOLECALCIFEROL [Suspect]
     Active Substance: CALCIUM CARBONATE\CHOLECALCIFEROL
     Indication: Product used for unknown indication
  11. DILTIAZEM [Suspect]
     Active Substance: DILTIAZEM
     Indication: Product used for unknown indication
  12. DILTIAZEM [Suspect]
     Active Substance: DILTIAZEM
  13. DILTIAZEM [Suspect]
     Active Substance: DILTIAZEM
  14. DILTIAZEM [Suspect]
     Active Substance: DILTIAZEM
  15. DILTIAZEM [Suspect]
     Active Substance: DILTIAZEM
  16. DOXAZOSIN MESYLATE [Suspect]
     Active Substance: DOXAZOSIN MESYLATE
     Indication: Product used for unknown indication
  17. DOXAZOSIN MESYLATE [Suspect]
     Active Substance: DOXAZOSIN MESYLATE
  18. DOXAZOSIN MESYLATE [Suspect]
     Active Substance: DOXAZOSIN MESYLATE
  19. DOXAZOSIN MESYLATE [Suspect]
     Active Substance: DOXAZOSIN MESYLATE
  20. DUTASTERIDE [Suspect]
     Active Substance: DUTASTERIDE
     Indication: Product used for unknown indication
  21. DUTASTERIDE [Suspect]
     Active Substance: DUTASTERIDE
  22. DUTASTERIDE [Suspect]
     Active Substance: DUTASTERIDE
  23. DUTASTERIDE [Suspect]
     Active Substance: DUTASTERIDE
  24. DUTASTERIDE [Suspect]
     Active Substance: DUTASTERIDE
  25. ELIQUIS [Suspect]
     Active Substance: APIXABAN
     Indication: Product used for unknown indication
  26. ERGOCALCIFEROL [Suspect]
     Active Substance: ERGOCALCIFEROL
     Indication: Product used for unknown indication
  27. ESCITALOPRAM OXALATE [Suspect]
     Active Substance: ESCITALOPRAM OXALATE
     Indication: Product used for unknown indication
  28. ESCITALOPRAM OXALATE [Suspect]
     Active Substance: ESCITALOPRAM OXALATE
  29. ESCITALOPRAM OXALATE [Suspect]
     Active Substance: ESCITALOPRAM OXALATE
  30. PREDNISONE [Suspect]
     Active Substance: PREDNISONE
     Indication: Product used for unknown indication
  31. PREDNISONE [Suspect]
     Active Substance: PREDNISONE
  32. PREDNISONE [Suspect]
     Active Substance: PREDNISONE
  33. ALBUTEROL [Suspect]
     Active Substance: ALBUTEROL
     Indication: Asthma
  34. SPIRIVA [Suspect]
     Active Substance: TIOTROPIUM BROMIDE MONOHYDRATE
     Indication: Product used for unknown indication
  35. SPIRIVA [Suspect]
     Active Substance: TIOTROPIUM BROMIDE MONOHYDRATE
  36. SPIRIVA [Suspect]
     Active Substance: TIOTROPIUM BROMIDE MONOHYDRATE
  37. SPIRIVA [Suspect]
     Active Substance: TIOTROPIUM BROMIDE MONOHYDRATE
  38. SPIRIVA [Suspect]
     Active Substance: TIOTROPIUM BROMIDE MONOHYDRATE
  39. SPIRIVA [Suspect]
     Active Substance: TIOTROPIUM BROMIDE MONOHYDRATE
  40. SPIRIVA [Suspect]
     Active Substance: TIOTROPIUM BROMIDE MONOHYDRATE
  41. SPIRIVA [Suspect]
     Active Substance: TIOTROPIUM BROMIDE MONOHYDRATE
  42. ZENHALE [Suspect]
     Active Substance: FORMOTEROL FUMARATE\MOMETASONE FUROATE
     Indication: Product used for unknown indication
  43. ZENHALE [Suspect]
     Active Substance: FORMOTEROL FUMARATE\MOMETASONE FUROATE
  44. ZENHALE [Suspect]
     Active Substance: FORMOTEROL FUMARATE\MOMETASONE FUROATE
  45. ZENHALE [Suspect]
     Active Substance: FORMOTEROL FUMARATE\MOMETASONE FUROATE
  46. ZENHALE [Suspect]
     Active Substance: FORMOTEROL FUMARATE\MOMETASONE FUROATE
  47. ZENHALE [Suspect]
     Active Substance: FORMOTEROL FUMARATE\MOMETASONE FUROATE
  48. ZENHALE [Suspect]
     Active Substance: FORMOTEROL FUMARATE\MOMETASONE FUROATE
  49. ZENHALE [Suspect]
     Active Substance: FORMOTEROL FUMARATE\MOMETASONE FUROATE
  50. ZENHALE [Suspect]
     Active Substance: FORMOTEROL FUMARATE\MOMETASONE FUROATE
  51. ZENHALE [Suspect]
     Active Substance: FORMOTEROL FUMARATE\MOMETASONE FUROATE
  52. ZENHALE [Suspect]
     Active Substance: FORMOTEROL FUMARATE\MOMETASONE FUROATE
  53. ZENHALE [Suspect]
     Active Substance: FORMOTEROL FUMARATE\MOMETASONE FUROATE
  54. ALBUTEROL [Suspect]
     Active Substance: ALBUTEROL
     Indication: Asthma
  55. ALBUTEROL [Suspect]
     Active Substance: ALBUTEROL
     Indication: Asthma
  56. ROSUVASTATIN CALCIUM [Concomitant]
     Active Substance: ROSUVASTATIN CALCIUM
     Indication: Product used for unknown indication
     Route: 058
  57. ROSUVASTATIN CALCIUM [Concomitant]
     Active Substance: ROSUVASTATIN CALCIUM
     Route: 058
  58. ROSUVASTATIN CALCIUM [Concomitant]
     Active Substance: ROSUVASTATIN CALCIUM
     Route: 058
  59. ROSUVASTATIN CALCIUM [Concomitant]
     Active Substance: ROSUVASTATIN CALCIUM
     Route: 058
  60. ROSUVASTATIN CALCIUM [Concomitant]
     Active Substance: ROSUVASTATIN CALCIUM
     Route: 058
  61. ROSUVASTATIN CALCIUM [Concomitant]
     Active Substance: ROSUVASTATIN CALCIUM
     Route: 058

REACTIONS (22)
  - Arteriosclerosis [Unknown]
  - Arteriosclerosis coronary artery [Unknown]
  - Asthma [Unknown]
  - Condition aggravated [Unknown]
  - Conjunctivitis allergic [Unknown]
  - Dust allergy [Unknown]
  - Dyspnoea [Unknown]
  - Full blood count abnormal [Unknown]
  - Hospitalisation [Unknown]
  - Hypoxia [Unknown]
  - Loss of personal independence in daily activities [Unknown]
  - Mite allergy [Unknown]
  - Mycotic allergy [Unknown]
  - Nodule [Unknown]
  - Normochromic normocytic anaemia [Unknown]
  - Productive cough [Unknown]
  - Pulmonary embolism [Unknown]
  - Sleep disorder due to a general medical condition [Unknown]
  - Spirometry abnormal [Unknown]
  - Therapeutic product effect incomplete [Unknown]
  - Thrombosis [Unknown]
  - Wheezing [Unknown]
